FAERS Safety Report 20837224 (Version 1)
Quarter: 2022Q2

REPORT INFORMATION
  Report Type: Spontaneous
  Country: US (occurrence: US)
  Receive Date: 20220517
  Receipt Date: 20220517
  Transmission Date: 20220721
  Serious: No
  Sender: FDA-Public Use
  Company Number: US-ALLERGAN-2138435US

PATIENT
  Sex: Male

DRUGS (1)
  1. ASACOL HD [Suspect]
     Active Substance: MESALAMINE
     Indication: Product used for unknown indication
     Dosage: 1 DF, BID

REACTIONS (1)
  - Inappropriate schedule of product administration [Unknown]
